FAERS Safety Report 19461026 (Version 2)
Quarter: 2021Q3

REPORT INFORMATION
  Report Type: Spontaneous
  Country: IT (occurrence: IT)
  Receive Date: 20210625
  Receipt Date: 20210712
  Transmission Date: 20211014
  Serious: Yes (Other)
  Sender: FDA-Public Use
  Company Number: IT-HIKMA PHARMACEUTICALS USA INC.-IT-H14001-21-02850

PATIENT
  Age: 62 Year
  Sex: Male

DRUGS (7)
  1. MYLOTARG [Suspect]
     Active Substance: GEMTUZUMAB OZOGAMICIN
     Indication: DRUG THERAPY
     Dosage: UNKNOWN
     Route: 065
  2. CA GLUCONATE [Concomitant]
     Active Substance: CALCIUM GLUCONATE
     Indication: DRUG THERAPY
     Dosage: 2 FL IN SF. 100
     Route: 065
     Dates: start: 20201201
  3. CYTARABINE. [Suspect]
     Active Substance: CYTARABINE
     Indication: ACUTE MYELOID LEUKAEMIA
     Dosage: UNKNOWN
     Route: 065
  4. PIPERACILLIN/TAZOBACTAM [Concomitant]
     Active Substance: PIPERACILLIN SODIUM\TAZOBACTAM SODIUM
     Indication: DRUG THERAPY
     Dosage: UNKNOWN
     Route: 065
     Dates: start: 20201003
  5. DECADRON [Concomitant]
     Active Substance: DEXAMETHASONE
     Indication: DRUG THERAPY
     Route: 065
     Dates: start: 20201201
  6. VANCOMYCIN [Concomitant]
     Active Substance: VANCOMYCIN
     Indication: DRUG THERAPY
     Dosage: UNKNOWN
     Route: 065
     Dates: start: 20201007
  7. TRIMETON [Concomitant]
     Active Substance: CHLORPHENIRAMINE MALEATE
     Indication: DRUG THERAPY
     Dosage: 1 VIAL IN SALINE SOLUTION 100
     Route: 065
     Dates: start: 20201201

REACTIONS (10)
  - Syncope [Unknown]
  - Chest pain [Unknown]
  - Chills [Unknown]
  - Hypocapnia [Unknown]
  - Bacteraemia [Unknown]
  - Bradycardia [Unknown]
  - Feeling cold [Unknown]
  - Deep vein thrombosis [Unknown]
  - Cardiac failure [Unknown]
  - Pyrexia [Unknown]

NARRATIVE: CASE EVENT DATE: 20201003
